FAERS Safety Report 4387151-5 (Version None)
Quarter: 2004Q2

REPORT INFORMATION
  Report Type: 
  Country: None (occurrence: None)
  Receive Date: 20040630
  Receipt Date: 20040315
  Transmission Date: 20050107
  Serious: No
  Sender: FDA-Public Use
  Company Number: US-GLAXOSMITHKLINE-A0502885A

PATIENT
  Age: 55 Year
  Sex: Male

DRUGS (9)
  1. ADVAIR HFA [Suspect]
     Indication: ASTHMA
     Dosage: 1PUFF TWICE PER DAY
     Route: 055
     Dates: start: 20030929
  2. HYDROCHLOROTHIAZIDE [Concomitant]
  3. VIOXX [Concomitant]
  4. SINGULAIR [Concomitant]
  5. RANITIDINE [Concomitant]
  6. UNKNOWN MEDICATION [Concomitant]
  7. LOTENSIN [Concomitant]
  8. THEOCHRON [Concomitant]
  9. ALBUTEROL [Concomitant]

REACTIONS (3)
  - DRUG INEFFECTIVE [None]
  - DYSPNOEA [None]
  - PHARMACEUTICAL PRODUCT COMPLAINT [None]
